FAERS Safety Report 9854153 (Version 2)
Quarter: 2014Q1

REPORT INFORMATION
  Report Type: Spontaneous
  Country: FR (occurrence: FR)
  Receive Date: 20140130
  Receipt Date: 20140210
  Transmission Date: 20141002
  Serious: Yes (Hospitalization)
  Sender: FDA-Public Use
  Company Number: FR-ROCHE-1341291

PATIENT
  Age: 85 Year
  Sex: Male

DRUGS (7)
  1. XOLAIR [Suspect]
     Indication: ASTHMA
     Route: 058
     Dates: start: 201004
  2. XOLAIR [Suspect]
     Route: 058
     Dates: end: 20140123
  3. SERETIDE [Concomitant]
  4. CORTANCYL [Concomitant]
     Route: 065
     Dates: start: 201312
  5. CACIT D3 [Concomitant]
     Route: 065
     Dates: start: 201312
  6. IMOVANE [Concomitant]
  7. SINTROM [Concomitant]

REACTIONS (5)
  - Allergic granulomatous angiitis [Unknown]
  - Asthma [Not Recovered/Not Resolved]
  - Tachyarrhythmia [Unknown]
  - Cardiac failure [Unknown]
  - Drug ineffective [Unknown]
